FAERS Safety Report 5811936-9 (Version None)
Quarter: 2008Q3

REPORT INFORMATION
  Report Type: 
  Country: None (occurrence: None)
  Receive Date: 20080716
  Receipt Date: 20080707
  Transmission Date: 20090109
  Serious: Yes (Hospitalization)
  Sender: FDA-Public Use
  Company Number: FR-AMGEN-UK276723

PATIENT
  Sex: Male

DRUGS (12)
  1. ARANESP [Suspect]
     Indication: RENAL FAILURE CHRONIC
     Route: 058
     Dates: start: 20061206, end: 20080318
  2. OGAST [Concomitant]
     Route: 065
  3. CALCIDIA [Concomitant]
     Route: 065
  4. IRBESARTAN [Concomitant]
     Route: 065
  5. LASIX [Concomitant]
     Route: 065
  6. NOVONORM [Concomitant]
     Route: 065
  7. EQUANIL [Concomitant]
     Route: 065
  8. EQUANIL [Concomitant]
     Route: 065
  9. TRIMEBUTINE [Concomitant]
     Route: 065
  10. KARDEGIC [Concomitant]
     Route: 065
  11. FOLIC ACID [Concomitant]
     Route: 065
  12. TARDYFERON [Concomitant]
     Route: 065

REACTIONS (5)
  - DRUG ERUPTION [None]
  - ECZEMA INFECTED [None]
  - EOSINOPHILIA [None]
  - HAEMOGLOBIN DECREASED [None]
  - PRURITUS [None]
